FAERS Safety Report 9521265 (Version 1)
Quarter: 2013Q3

REPORT INFORMATION
  Report Type: Spontaneous
  Country: US (occurrence: US)
  Receive Date: 20130913
  Receipt Date: 20130913
  Transmission Date: 20140515
  Serious: Yes (Other)
  Sender: FDA-Public Use
  Company Number: US-JNJFOC-20130902003

PATIENT
  Age: 50 Year
  Sex: Female
  Weight: 77.11 kg

DRUGS (21)
  1. DURAGESIC [Suspect]
     Indication: INTERVERTEBRAL DISC PROTRUSION
     Route: 062
  2. DURAGESIC [Suspect]
     Indication: INTERVERTEBRAL DISC PROTRUSION
     Route: 062
  3. DURAGESIC [Suspect]
     Indication: INTERVERTEBRAL DISC DEGENERATION
     Route: 062
  4. DURAGESIC [Suspect]
     Indication: INTERVERTEBRAL DISC DEGENERATION
     Route: 062
  5. FENTANYL TRANSDERMAL SYSTEM [Suspect]
     Indication: INTERVERTEBRAL DISC PROTRUSION
     Route: 062
  6. FENTANYL TRANSDERMAL SYSTEM [Suspect]
     Indication: INTERVERTEBRAL DISC DEGENERATION
     Route: 062
  7. CELEBREX [Concomitant]
     Indication: ANTIINFLAMMATORY THERAPY
     Route: 048
  8. CELEBREX [Concomitant]
     Indication: ARTHRITIS
     Route: 048
  9. TYLENOL [Concomitant]
     Indication: INTERVERTEBRAL DISC PROTRUSION
     Dosage: 1 TO 2 TABLETS OF 300-60MG
     Route: 048
  10. TYLENOL [Concomitant]
     Indication: INTERVERTEBRAL DISC DEGENERATION
     Dosage: 1 TO 2 TABLETS OF 300-60MG
     Route: 048
  11. TYLENOL [Concomitant]
     Indication: MIGRAINE
     Dosage: 1 TO 2 TABLETS OF 300-60MG
     Route: 048
  12. PROTONIX [Concomitant]
     Indication: GASTROOESOPHAGEAL REFLUX DISEASE
     Route: 048
  13. PROTONIX [Concomitant]
     Indication: IRRITABLE BOWEL SYNDROME
     Route: 048
  14. LOMOTIL [Concomitant]
     Indication: DIARRHOEA
     Route: 048
  15. LOMOTIL [Concomitant]
     Indication: ABDOMINAL PAIN UPPER
     Route: 048
  16. AMBIEN [Concomitant]
     Indication: INSOMNIA
     Dosage: 1.5 TABLETS??10 MG/HOUR OF SLEEP
     Route: 048
  17. AMBIEN [Concomitant]
     Indication: SLEEP DISORDER
     Dosage: 1.5 TABLETS??10 MG/HOUR OF SLEEP
     Route: 048
  18. VITAMIN D [Concomitant]
     Indication: VITAMIN D DEFICIENCY
     Route: 048
  19. MECLIZINE [Concomitant]
     Indication: INNER EAR DISORDER
     Route: 048
  20. PHENERGAN [Concomitant]
     Indication: VOMITING
     Route: 048
  21. PHENERGAN [Concomitant]
     Indication: VOMITING
     Route: 054

REACTIONS (10)
  - Arthritis [Not Recovered/Not Resolved]
  - Intervertebral disc protrusion [Not Recovered/Not Resolved]
  - Neck pain [Not Recovered/Not Resolved]
  - Laceration [Not Recovered/Not Resolved]
  - Acne [Not Recovered/Not Resolved]
  - Back pain [Not Recovered/Not Resolved]
  - Drug dose omission [Unknown]
  - Application site hypersensitivity [Not Recovered/Not Resolved]
  - Product adhesion issue [Unknown]
  - Underdose [Not Recovered/Not Resolved]
